FAERS Safety Report 20475949 (Version 1)
Quarter: 2022Q1

REPORT INFORMATION
  Report Type: Spontaneous
  Country: US (occurrence: US)
  Receive Date: 20220215
  Receipt Date: 20220215
  Transmission Date: 20220423
  Serious: Yes (Death, Other)
  Sender: FDA-Public Use
  Company Number: US-GLAXOSMITHKLINE-US2022GSK027340

PATIENT
  Sex: Female

DRUGS (2)
  1. ZANTAC [Suspect]
     Active Substance: RANITIDINE HYDROCHLORIDE
     Indication: Colon cancer
     Dosage: 300 MG, WE
     Route: 065
     Dates: start: 200002, end: 201204
  2. ZANTAC [Suspect]
     Active Substance: RANITIDINE HYDROCHLORIDE
     Indication: Colon cancer
     Dosage: 300 MG, WE
     Route: 065
     Dates: start: 200002, end: 201204

REACTIONS (1)
  - Colorectal cancer [Fatal]
